FAERS Safety Report 21158863 (Version 1)
Quarter: 2022Q3

REPORT INFORMATION
  Report Type: Spontaneous
  Country: IT (occurrence: IT)
  Receive Date: 20220802
  Receipt Date: 20220802
  Transmission Date: 20221026
  Serious: Yes (Hospitalization, Other)
  Sender: FDA-Public Use
  Company Number: IT-STADA-253755

PATIENT
  Age: 14 Year
  Sex: Male

DRUGS (5)
  1. ARIPIPRAZOLE [Suspect]
     Active Substance: ARIPIPRAZOLE
     Indication: Schizophrenia
     Dosage: 5 MILLIGRAM, ONCE A DAY
     Route: 065
  2. ARIPIPRAZOLE [Suspect]
     Active Substance: ARIPIPRAZOLE
     Dosage: 30 MILLIGRAM, ONCE A DAY (IN ONE WEEK)
     Route: 065
  3. ARIPIPRAZOLE [Suspect]
     Active Substance: ARIPIPRAZOLE
     Indication: Schizophrenia
     Dosage: UNK
     Route: 065
  4. OLANZAPINE [Concomitant]
     Active Substance: OLANZAPINE
     Indication: Schizophrenia
     Dosage: UNK
     Route: 065
  5. LITHIUM [Concomitant]
     Active Substance: LITHIUM
     Indication: Schizophrenia
     Dosage: UNK
     Route: 065

REACTIONS (3)
  - Rebound effect [Unknown]
  - Off label use [Unknown]
  - Drug ineffective [Unknown]
